FAERS Safety Report 5477808-7 (Version None)
Quarter: 2007Q4

REPORT INFORMATION
  Report Type: 
  Country: None (occurrence: None)
  Receive Date: 20071004
  Receipt Date: 20070924
  Transmission Date: 20080405
  Serious: Yes (Death, Hospitalization)
  Sender: FDA-Public Use
  Company Number: -BAXTER-2007BH007885

PATIENT
  Sex: Male

DRUGS (1)
  1. DIANEAL [Suspect]
     Indication: PERITONEAL DIALYSIS
     Route: 033

REACTIONS (5)
  - CONFUSIONAL STATE [None]
  - DEATH [None]
  - DISORIENTATION [None]
  - EXTREMITY NECROSIS [None]
  - PERITONITIS [None]
